FAERS Safety Report 12927621 (Version 1)
Quarter: 2016Q4

REPORT INFORMATION
  Report Type: Spontaneous
  Country: US (occurrence: US)
  Receive Date: 20161109
  Receipt Date: 20161109
  Transmission Date: 20170207
  Serious: Yes (Other)
  Sender: FDA-Public Use
  Company Number: US-MYLANLABS-2016M1047619

PATIENT

DRUGS (2)
  1. LEVOTHYROXINE SODIUM TABLETS, USP [Suspect]
     Active Substance: LEVOTHYROXINE SODIUM
     Indication: PRODUCT USED FOR UNKNOWN INDICATION
     Dosage: 112 ?G, QD
     Route: 048
  2. RIVAROXABAN [Suspect]
     Active Substance: RIVAROXABAN
     Indication: PRODUCT USED FOR UNKNOWN INDICATION
     Dosage: UNK

REACTIONS (5)
  - Gait disturbance [Not Recovered/Not Resolved]
  - Thrombosis [Unknown]
  - Aphonia [Recovered/Resolved]
  - Joint swelling [Not Recovered/Not Resolved]
  - Exostosis [Not Recovered/Not Resolved]

NARRATIVE: CASE EVENT DATE: 2016
